FAERS Safety Report 6549795-1 (Version None)
Quarter: 2010Q1

REPORT INFORMATION
  Report Type: 
  Country: None (occurrence: None)
  Receive Date: 20100119
  Receipt Date: 20100104
  Transmission Date: 20100710
  Serious: Yes (Death, Hospitalization)
  Sender: FDA-Public Use
  Company Number: 2009AC000213

PATIENT
  Age: 70 Year
  Sex: Male

DRUGS (28)
  1. DIGOXIN [Suspect]
     Dosage: 0.25 MG;QD;PO
     Route: 048
     Dates: start: 20000101
  2. COUMADIN [Concomitant]
  3. HEPARIN [Concomitant]
  4. METOPROLOL [Concomitant]
  5. PHENYTOIN [Concomitant]
  6. ALBUTEROL [Concomitant]
  7. ATROVENT [Concomitant]
  8. OCUFLOX [Concomitant]
  9. ZYRTEC [Concomitant]
  10. TRIMOX [Concomitant]
  11. IBUPROFEN [Concomitant]
  12. VIAGRA [Concomitant]
  13. AMOXICILLIN [Concomitant]
  14. PROAIR HFA [Concomitant]
  15. FUROSEMIDE [Concomitant]
  16. ADVAIR [Concomitant]
  17. ALUPENT [Concomitant]
  18. THEODAIRE [Concomitant]
  19. ADVAIR [Concomitant]
  20. FUROSEMIDE [Concomitant]
  21. WARFARIN SODIUM [Concomitant]
  22. METOPROLOL [Concomitant]
  23. PHENYTOIN [Concomitant]
  24. ATROVENT [Concomitant]
  25. AEROBID [Concomitant]
  26. COUMADIN [Concomitant]
  27. TOPROL-XL [Concomitant]
  28. DILANTIN [Concomitant]

REACTIONS (33)
  - AORTIC STENOSIS [None]
  - ASTHMA [None]
  - ATRIAL FIBRILLATION [None]
  - CARDIAC ARREST [None]
  - CAROTID ARTERIOSCLEROSIS [None]
  - CEREBROVASCULAR ACCIDENT [None]
  - CHRONIC OBSTRUCTIVE PULMONARY DISEASE [None]
  - CONVULSION [None]
  - DEPRESSION [None]
  - ECONOMIC PROBLEM [None]
  - EMOTIONAL DISTRESS [None]
  - FALL [None]
  - GASTROINTESTINAL HAEMORRHAGE [None]
  - HAEMOTHORAX [None]
  - HEPATIC CONGESTION [None]
  - HEPATIC FAILURE [None]
  - HYPERTENSION [None]
  - HYPOTENSION [None]
  - INJURY [None]
  - INTERNATIONAL NORMALISED RATIO INCREASED [None]
  - MITRAL VALVE DISEASE [None]
  - MULTI-ORGAN FAILURE [None]
  - NASAL CONGESTION [None]
  - PAIN [None]
  - PNEUMONIA [None]
  - RENAL FAILURE [None]
  - RESPIRATORY FAILURE [None]
  - RIB FRACTURE [None]
  - SEPSIS [None]
  - SOCIAL AVOIDANT BEHAVIOUR [None]
  - TRANSIENT ISCHAEMIC ATTACK [None]
  - TRAUMATIC LUNG INJURY [None]
  - UNEVALUABLE EVENT [None]
